FAERS Safety Report 20086735 (Version 1)
Quarter: 2021Q4

REPORT INFORMATION
  Report Type: Spontaneous
  Country: US (occurrence: US)
  Receive Date: 20211118
  Receipt Date: 20211118
  Transmission Date: 20220303
  Serious: Yes (Hospitalization, Other)
  Sender: FDA-Public Use
  Company Number: US-PURDUE-USA-2021-0289241

PATIENT
  Sex: Female

DRUGS (2)
  1. OXYCONTIN [Suspect]
     Active Substance: OXYCODONE HYDROCHLORIDE
     Indication: Road traffic accident
     Dosage: UNKNOWN
     Route: 048
  2. OXYCONTIN [Suspect]
     Active Substance: OXYCODONE HYDROCHLORIDE
     Indication: Limb injury

REACTIONS (10)
  - Hospitalisation [Unknown]
  - Overdose [Unknown]
  - Drug dependence [Recovering/Resolving]
  - Emotional distress [Unknown]
  - Maternal exposure during pregnancy [Unknown]
  - Infection [Unknown]
  - Depression [Unknown]
  - Anxiety [Unknown]
  - Post-traumatic stress disorder [Unknown]
  - Injury [Unknown]
